FAERS Safety Report 6858772-2 (Version None)
Quarter: 2010Q3

REPORT INFORMATION
  Report Type: 
  Country: None (occurrence: None)
  Receive Date: 20100719
  Receipt Date: 20080215
  Transmission Date: 20110219
  Serious: Yes (Other)
  Sender: FDA-Public Use
  Company Number: US-PFIZER INC-2008014072

PATIENT
  Sex: Male
  Weight: 70.3 kg

DRUGS (2)
  1. CHANTIX [Suspect]
     Indication: SMOKING CESSATION THERAPY
     Dates: start: 20061201, end: 20080201
  2. ALL OTHER THERAPEUTIC PRODUCTS [Concomitant]

REACTIONS (14)
  - ABNORMAL BEHAVIOUR [None]
  - CONSTIPATION [None]
  - DISTURBANCE IN ATTENTION [None]
  - FEELING ABNORMAL [None]
  - FEELING COLD [None]
  - HALLUCINATION [None]
  - NAUSEA [None]
  - PAIN [None]
  - PERSONALITY DISORDER [None]
  - POOR QUALITY SLEEP [None]
  - RENAL DISORDER [None]
  - RENAL PAIN [None]
  - VISUAL IMPAIRMENT [None]
  - VOMITING [None]
